FAERS Safety Report 15397149 (Version 4)
Quarter: 2020Q2

REPORT INFORMATION
  Report Type: Report from Study
  Country: None (occurrence: US)
  Receive Date: 20180918
  Receipt Date: 20200403
  Transmission Date: 20200713
  Serious: Yes (Other)
  Sender: FDA-Public Use
  Company Number: US-ABBVIE-18K-163-2482991-00

PATIENT
  Age: 51 Year
  Sex: Female
  Weight: 83 kg

DRUGS (4)
  1. AMITRIPTYLINE [Concomitant]
     Active Substance: AMITRIPTYLINE
     Indication: TENSION HEADACHE
  2. HUMIRA [Suspect]
     Active Substance: ADALIMUMAB
     Indication: CROHN^S DISEASE
     Route: 058
     Dates: start: 201210
  3. HUMIRA [Suspect]
     Active Substance: ADALIMUMAB
     Route: 058
     Dates: start: 201803
  4. CYCLOBENZAPRINE. [Concomitant]
     Active Substance: CYCLOBENZAPRINE
     Indication: TENSION HEADACHE

REACTIONS (9)
  - Tinnitus [Unknown]
  - Otorrhoea [Unknown]
  - Groin abscess [Unknown]
  - Hidradenitis [Unknown]
  - Ear haemorrhage [Unknown]
  - Ear pain [Unknown]
  - Deafness bilateral [Unknown]
  - Crohn^s disease [Unknown]
  - Headache [Unknown]

NARRATIVE: CASE EVENT DATE: 2014
